FAERS Safety Report 10328376 (Version 1)
Quarter: 2014Q3

REPORT INFORMATION
  Report Type: Spontaneous
  Country: RU (occurrence: RU)
  Receive Date: 20140721
  Receipt Date: 20140721
  Transmission Date: 20150326
  Serious: Yes (Life-Threatening, Hospitalization)
  Sender: FDA-Public Use
  Company Number: RU-ASTRAZENECA-2014SE52429

PATIENT
  Sex: Female

DRUGS (1)
  1. PULMICORT RESPULES [Suspect]
     Active Substance: BUDESONIDE
     Indication: LARYNGOTRACHEITIS OBSTRUCTIVE
     Route: 055

REACTIONS (2)
  - Drug ineffective [Unknown]
  - Laryngotracheitis obstructive [Unknown]
